FAERS Safety Report 17524650 (Version 1)
Quarter: 2020Q1

REPORT INFORMATION
  Report Type: Spontaneous
  Country: PL (occurrence: PL)
  Receive Date: 20200310
  Receipt Date: 20200310
  Transmission Date: 20200409
  Serious: Yes (Other)
  Sender: FDA-Public Use
  Company Number: PL-UCBSA-2020006967

PATIENT
  Age: 25 Year
  Sex: Female

DRUGS (14)
  1. METFORMIN [Concomitant]
     Active Substance: METFORMIN HYDROCHLORIDE
     Indication: INSULIN RESISTANCE
     Dosage: UNKNOWN DOSE
  2. OXCARBAZEPINE. [Suspect]
     Active Substance: OXCARBAZEPINE
     Indication: PRODUCT USED FOR UNKNOWN INDICATION
     Dosage: UNKNOWN DOSE
  3. VALPROIC ACID. [Suspect]
     Active Substance: VALPROIC ACID
     Indication: SEIZURE
     Dosage: UNKNOWN DOSE
  4. VALPROIC ACID. [Suspect]
     Active Substance: VALPROIC ACID
     Indication: EPILEPSY
  5. NORELGESTROMIN [Concomitant]
     Active Substance: NORELGESTROMIN
     Indication: HORMONE REPLACEMENT THERAPY
  6. ETHINYLOESTRADIOL [Concomitant]
     Active Substance: ETHINYL ESTRADIOL
     Indication: AMENORRHOEA
  7. LAMOTRIGINE. [Concomitant]
     Active Substance: LAMOTRIGINE
     Indication: SEIZURE
     Dosage: 300 MILLIGRAM DAILY
  8. LAMOTRIGINE. [Concomitant]
     Active Substance: LAMOTRIGINE
     Dosage: GRADUALLY INCREASING DOSES UP TO 250 MG PER DAY
  9. TIAGABINE HYDROCHLORIDE. [Suspect]
     Active Substance: TIAGABINE HYDROCHLORIDE
     Indication: EPILEPSY
     Dosage: DOSES INCREASING TO 20 MG DAILY
  10. KEPPRA [Suspect]
     Active Substance: LEVETIRACETAM
     Indication: PRODUCT USED FOR UNKNOWN INDICATION
     Dosage: 3 GRAM DAILY
  11. VIMPAT [Suspect]
     Active Substance: LACOSAMIDE
     Indication: EPILEPSY
     Dosage: DOSES GRADUALLY INCREASING TO 400 MG PER DAY
  12. NORELGESTROMIN [Concomitant]
     Active Substance: NORELGESTROMIN
     Indication: AMENORRHOEA
  13. TOPIRAMATE. [Suspect]
     Active Substance: TOPIRAMATE
     Indication: SEIZURE
     Dosage: UNKNOWN DOSE
  14. ETHINYLOESTRADIOL [Concomitant]
     Active Substance: ETHINYL ESTRADIOL
     Indication: HORMONE REPLACEMENT THERAPY

REACTIONS (4)
  - Multiple-drug resistance [Recovering/Resolving]
  - Disturbance in attention [Recovered/Resolved]
  - Dizziness [Unknown]
  - Seizure [Recovering/Resolving]
